FAERS Safety Report 13532263 (Version 1)
Quarter: 2017Q2

REPORT INFORMATION
  Report Type: Spontaneous
  Country: CA (occurrence: CA)
  Receive Date: 20170510
  Receipt Date: 20170510
  Transmission Date: 20170830
  Serious: Yes (Other)
  Sender: FDA-Public Use
  Company Number: CA-PFIZER INC-2017200758

PATIENT
  Age: 30 Year
  Sex: Female
  Weight: 108 kg

DRUGS (3)
  1. HYDROMORPHONE [Concomitant]
     Active Substance: HYDROMORPHONE
     Indication: INTRACRANIAL PRESSURE INCREASED
     Dosage: 2 MG, EVERY 4 HOURS
     Dates: start: 20150909
  2. FRAGMIN [Suspect]
     Active Substance: DALTEPARIN SODIUM
     Indication: PULMONARY EMBOLISM
     Dosage: 12500 IU, 1X/DAY
     Route: 058
     Dates: start: 20150909, end: 20160315
  3. ACETAZOLAMIDE. [Concomitant]
     Active Substance: ACETAZOLAMIDE
     Indication: INTRACRANIAL PRESSURE INCREASED
     Dosage: 500 MG, 3X/DAY
     Dates: start: 20150909

REACTIONS (2)
  - Gestational diabetes [Unknown]
  - Product use in unapproved indication [Unknown]
